FAERS Safety Report 9242122 (Version 5)
Quarter: 2015Q1

REPORT INFORMATION
  Report Type: Spontaneous
  Country: US (occurrence: US)
  Receive Date: 20130419
  Receipt Date: 20150105
  Transmission Date: 20150721
  Serious: Yes (Death, Other)
  Sender: FDA-Public Use
  Company Number: US-JNJFOC-20130406294

PATIENT

DRUGS (12)
  1. RITUXIMAB [Suspect]
     Active Substance: RITUXIMAB
     Indication: MANTLE CELL LYMPHOMA
     Route: 065
  2. RITUXIMAB [Suspect]
     Active Substance: RITUXIMAB
     Indication: NON-HODGKIN^S LYMPHOMA
     Route: 065
  3. CYCLOPHOSPHAMIDE. [Suspect]
     Active Substance: CYCLOPHOSPHAMIDE
     Indication: MANTLE CELL LYMPHOMA
     Route: 065
  4. BENDAMUSTINE [Suspect]
     Active Substance: BENDAMUSTINE
     Indication: MANTLE CELL LYMPHOMA
     Route: 042
  5. PREDNISONE. [Suspect]
     Active Substance: PREDNISONE
     Indication: MANTLE CELL LYMPHOMA
     Route: 065
  6. BENDAMUSTINE [Suspect]
     Active Substance: BENDAMUSTINE
     Indication: NON-HODGKIN^S LYMPHOMA
     Route: 042
  7. VINCRISTINE [Suspect]
     Active Substance: VINCRISTINE
     Indication: NON-HODGKIN^S LYMPHOMA
     Route: 065
  8. PREDNISONE. [Suspect]
     Active Substance: PREDNISONE
     Indication: NON-HODGKIN^S LYMPHOMA
     Route: 065
  9. VINCRISTINE [Suspect]
     Active Substance: VINCRISTINE
     Indication: MANTLE CELL LYMPHOMA
     Route: 065
  10. DOXORUBICIN [Suspect]
     Active Substance: DOXORUBICIN
     Indication: MANTLE CELL LYMPHOMA
     Route: 042
  11. DOXORUBICIN [Suspect]
     Active Substance: DOXORUBICIN
     Indication: NON-HODGKIN^S LYMPHOMA
     Route: 042
  12. CYCLOPHOSPHAMIDE. [Suspect]
     Active Substance: CYCLOPHOSPHAMIDE
     Indication: NON-HODGKIN^S LYMPHOMA
     Route: 065

REACTIONS (27)
  - Lymphopenia [Unknown]
  - Adverse drug reaction [Unknown]
  - Fatigue [Unknown]
  - Pyrexia [Unknown]
  - Respiratory disorder [Unknown]
  - Nausea [Unknown]
  - Death [Fatal]
  - Drug hypersensitivity [Unknown]
  - Thrombocytopenia [Unknown]
  - Constipation [Unknown]
  - Paraesthesia [Unknown]
  - Alopecia [Unknown]
  - Pruritus [Unknown]
  - Leukopenia [Unknown]
  - Vomiting [Unknown]
  - Opportunistic infection [Unknown]
  - Neuropathy peripheral [Unknown]
  - Chills [Unknown]
  - Hypersensitivity [Unknown]
  - Neutropenia [Unknown]
  - Anaemia [Unknown]
  - Infusion related reaction [Unknown]
  - Disease progression [Unknown]
  - Condition aggravated [Unknown]
  - Decreased appetite [Unknown]
  - Febrile neutropenia [Unknown]
  - Rash [Unknown]
